FAERS Safety Report 13191799 (Version 1)
Quarter: 2017Q1

REPORT INFORMATION
  Report Type: Spontaneous
  Country: US (occurrence: US)
  Receive Date: 20170206
  Receipt Date: 20170206
  Transmission Date: 20170428
  Serious: Yes (Other)
  Sender: FDA-Public Use
  Company Number: None

PATIENT
  Age: 41 Year
  Sex: Female

DRUGS (1)
  1. LUPRON DEPOT [Suspect]
     Active Substance: LEUPROLIDE ACETATE
     Dosage: OTHER FREQUENCY:EVERY 3 MONTHS;?
     Route: 030
     Dates: start: 20170113, end: 20170206

REACTIONS (4)
  - Injection site swelling [None]
  - Injection site pain [None]
  - Injection site nodule [None]
  - Staphylococcal infection [None]

NARRATIVE: CASE EVENT DATE: 20170206
